FAERS Safety Report 11680225 (Version 2)
Quarter: 2015Q4

REPORT INFORMATION
  Report Type: Spontaneous
  Country: US (occurrence: US)
  Receive Date: 20151027
  Receipt Date: 20151104
  Transmission Date: 20160304
  Serious: Yes (Hospitalization)
  Sender: FDA-Public Use
  Company Number: US-ELI_LILLY_AND_COMPANY-US201011001240

PATIENT
  Sex: Male

DRUGS (7)
  1. OMEPRAZOLE. [Concomitant]
     Active Substance: OMEPRAZOLE
     Dosage: UNK, UNKNOWN
     Route: 065
  2. FORTEO [Suspect]
     Active Substance: TERIPARATIDE
     Indication: OSTEOPOROSIS
     Dosage: 20 UG, DAILY (1/D)
     Route: 065
  3. OXYCONTIN [Concomitant]
     Active Substance: OXYCODONE HYDROCHLORIDE
     Dosage: UNK, AS NEEDED
     Route: 065
  4. VITAMIN C [Concomitant]
     Active Substance: ASCORBIC ACID
     Dosage: 50000 U, MONTHLY (1/M)
     Route: 065
  5. VIRACEPT [Concomitant]
     Active Substance: NELFINAVIR MESYLATE
     Dosage: UNK, UNKNOWN
     Route: 065
  6. TRUVADA [Concomitant]
     Active Substance: EMTRICITABINE\TENOFOVIR DISOPROXIL FUMARATE
     Dosage: UNK, UNKNOWN
     Route: 065
  7. KLONOPIN [Concomitant]
     Active Substance: CLONAZEPAM
     Dosage: UNK, AS NEEDED
     Route: 065

REACTIONS (4)
  - Dyspepsia [Unknown]
  - Gastrooesophageal reflux disease [Unknown]
  - Injection site nodule [Unknown]
  - Pneumonia [Unknown]
